FAERS Safety Report 21408611 (Version 1)
Quarter: 2022Q4

REPORT INFORMATION
  Report Type: Spontaneous
  Country: US (occurrence: US)
  Receive Date: 20221004
  Receipt Date: 20221004
  Transmission Date: 20230113
  Serious: No
  Sender: FDA-Public Use
  Company Number: US-AMNEAL PHARMACEUTICALS-2022-AMRX-01673

PATIENT
  Sex: Female

DRUGS (1)
  1. FLUOCINONIDE [Suspect]
     Active Substance: FLUOCINONIDE
     Indication: Product used for unknown indication
     Dosage: 0.05% CREAM
     Route: 061

REACTIONS (4)
  - Rash [Unknown]
  - Swelling [Unknown]
  - Erythema [Unknown]
  - Pain [Unknown]
